FAERS Safety Report 17999933 (Version 1)
Quarter: 2020Q3

REPORT INFORMATION
  Report Type: Spontaneous
  Country: US (occurrence: US)
  Receive Date: 20200709
  Receipt Date: 20200709
  Transmission Date: 20201103
  Serious: No
  Sender: FDA-Public Use
  Company Number: US-TEVA-2020-US-1798886

PATIENT
  Age: 79 Year
  Sex: Male
  Weight: 77.11 kg

DRUGS (9)
  1. BUTALBITAL [Concomitant]
     Active Substance: BUTALBITAL
     Indication: HEADACHE
     Dosage: DOSE: AS NEEDED
  2. ATORVASTATIN [Concomitant]
     Active Substance: ATORVASTATIN
  3. MECLIZINE [Concomitant]
     Active Substance: MECLIZINE HYDROCHLORIDE
  4. LISINOPRIL. [Concomitant]
     Active Substance: LISINOPRIL
  5. HYDROCHLOROTHIAZIDE. [Concomitant]
     Active Substance: HYDROCHLOROTHIAZIDE
     Indication: HYPERTENSION
  6. BUPROPION HYDROCHLORIDE XL [Concomitant]
     Active Substance: BUPROPION HYDROCHLORIDE
  7. TRAZODONE HYDROCHLORIDE. [Suspect]
     Active Substance: TRAZODONE HYDROCHLORIDE
     Indication: INSOMNIA
     Dosage: DOSE: 1?2 TABLETS TO BE TAKEN AS NEEDED AT BEDTIME
     Route: 065
  8. TRAZODONE HYDROCHLORIDE. [Suspect]
     Active Substance: TRAZODONE HYDROCHLORIDE
     Dosage: DOSE: TOOK TWO TABLETS BEFORE BED
     Route: 065
     Dates: start: 20200630
  9. CLONAZEPAM. [Concomitant]
     Active Substance: CLONAZEPAM
     Indication: INSOMNIA
     Dosage: DOSE: AS NEEDED

REACTIONS (10)
  - Dizziness [Recovering/Resolving]
  - Hypersomnia [Unknown]
  - Fall [Recovering/Resolving]
  - Feeling abnormal [Recovering/Resolving]
  - Restlessness [Recovering/Resolving]
  - Depression [Recovering/Resolving]
  - Anxiety [Recovering/Resolving]
  - Gait disturbance [Recovering/Resolving]
  - Agitation [Recovering/Resolving]
  - Irritability [Recovering/Resolving]

NARRATIVE: CASE EVENT DATE: 20200630
